FAERS Safety Report 6447408-0 (Version None)
Quarter: 2009Q4

REPORT INFORMATION
  Report Type: 
  Country: None (occurrence: None)
  Receive Date: 20091119
  Receipt Date: 20091110
  Transmission Date: 20100525
  Serious: Yes (Hospitalization)
  Sender: FDA-Public Use
  Company Number: DE-ASTRAZENECA-2009SE25918

PATIENT
  Age: 63 Year
  Sex: Male

DRUGS (3)
  1. SEROQUEL XR [Suspect]
     Route: 048
     Dates: start: 20081211, end: 20081214
  2. SEROQUEL XR [Suspect]
     Route: 048
     Dates: start: 20081215, end: 20090120
  3. SEROQUEL XR [Suspect]
     Route: 048
     Dates: start: 20090121, end: 20090129

REACTIONS (1)
  - NEUTROPENIA [None]
